FAERS Safety Report 14470057 (Version 4)
Quarter: 2020Q2

REPORT INFORMATION
  Report Type: Report from Study
  Country: GB (occurrence: GB)
  Receive Date: 20180131
  Receipt Date: 20200624
  Transmission Date: 20200713
  Serious: Yes (Hospitalization)
  Sender: FDA-Public Use
  Company Number: PHFR2015GB003665

PATIENT
  Age: 33 Year
  Sex: Male

DRUGS (3)
  1. TOLTERODINE [Concomitant]
     Active Substance: TOLTERODINE
     Indication: NEUROGENIC BLADDER
     Dosage: 4 MG, UNK
     Route: 065
     Dates: start: 201407
  2. AMITRIPTYLINE [Concomitant]
     Active Substance: AMITRIPTYLINE
     Indication: PRODUCT USED FOR UNKNOWN INDICATION
     Dosage: 10 MG, UNK
     Route: 065
  3. GILENYA [Suspect]
     Active Substance: FINGOLIMOD HYDROCHLORIDE
     Indication: MULTIPLE SCLEROSIS
     Dosage: 500 UG, QD
     Route: 048
     Dates: start: 20140502

REACTIONS (5)
  - Urinary retention [Recovered/Resolved]
  - Insomnia [Unknown]
  - Pyrexia [Recovered/Resolved]
  - Urinary tract infection [Recovered/Resolved]
  - Depressed mood [Unknown]

NARRATIVE: CASE EVENT DATE: 20141127
